FAERS Safety Report 5905785-0 (Version None)
Quarter: 2008Q4

REPORT INFORMATION
  Report Type: 
  Country: None (occurrence: None)
  Receive Date: 20081002
  Receipt Date: 20080926
  Transmission Date: 20090506
  Serious: Yes (Death)
  Sender: FDA-Public Use
  Company Number: A0750162A

PATIENT
  Age: 74 Year
  Sex: Female
  Weight: 65.9 kg

DRUGS (7)
  1. AVANDIA [Suspect]
     Indication: DIABETES MELLITUS
     Dosage: 2MG PER DAY
     Route: 048
     Dates: start: 20051001, end: 20061101
  2. AVANDIA [Suspect]
     Dosage: 4MG PER DAY
     Route: 048
     Dates: start: 20000801, end: 20001001
  3. GLUCOPHAGE [Concomitant]
  4. METFORMIN HCL [Concomitant]
  5. INSULIN [Concomitant]
  6. GLYBURIDE [Concomitant]
  7. GLIPIZIDE [Concomitant]

REACTIONS (3)
  - CARDIAC FAILURE CONGESTIVE [None]
  - CORONARY ARTERY DISEASE [None]
  - DEATH [None]
